FAERS Safety Report 13356083 (Version 4)
Quarter: 2017Q2

REPORT INFORMATION
  Report Type: Report from Study
  Country: US (occurrence: US)
  Receive Date: 20170321
  Receipt Date: 20170418
  Transmission Date: 20170830
  Serious: No
  Sender: FDA-Public Use
  Company Number: PHEH2017US008309

PATIENT
  Sex: Female
  Weight: 70.7 kg

DRUGS (1)
  1. GILENYA [Suspect]
     Active Substance: FINGOLIMOD HYDROCHLORIDE
     Indication: MULTIPLE SCLEROSIS
     Dosage: 0.5 MG, QD
     Route: 048
     Dates: start: 20110413

REACTIONS (6)
  - Asthenia [Unknown]
  - Euphoric mood [Unknown]
  - Pain [Unknown]
  - Musculoskeletal pain [Unknown]
  - Amnesia [Unknown]
  - Breast pain [Unknown]
